FAERS Safety Report 11565850 (Version 5)
Quarter: 2016Q2

REPORT INFORMATION
  Report Type: Report from Study
  Country: US (occurrence: US)
  Receive Date: 20150928
  Receipt Date: 20160503
  Transmission Date: 20160815
  Serious: Yes (Death, Hospitalization, Other)
  Sender: FDA-Public Use
  Company Number: US-EXELIXIS-CABO-15005486

PATIENT
  Age: 70 Year
  Sex: Female

DRUGS (26)
  1. COMETRIQ [Suspect]
     Active Substance: CABOZANTINIB S-MALATE
     Indication: GASTRIC CANCER
     Dosage: 80 MG, QD
     Dates: start: 20150722, end: 2015
  2. COMETRIQ [Suspect]
     Active Substance: CABOZANTINIB S-MALATE
     Dosage: 100 MG, QD
     Route: 048
     Dates: start: 20151120, end: 201511
  3. ZOFRAN [Concomitant]
     Active Substance: ONDANSETRON HYDROCHLORIDE
  4. COMETRIQ [Suspect]
     Active Substance: CABOZANTINIB S-MALATE
     Dosage: 100 MG, QD
     Route: 048
     Dates: start: 201603, end: 20160404
  5. KLOR-CON [Concomitant]
     Active Substance: POTASSIUM CHLORIDE
  6. OPIUM. [Concomitant]
     Active Substance: OPIUM
  7. NYSTATIN. [Concomitant]
     Active Substance: NYSTATIN
  8. FENTANYL. [Concomitant]
     Active Substance: FENTANYL
  9. COMETRIQ [Suspect]
     Active Substance: CABOZANTINIB S-MALATE
     Indication: THYROID CANCER
     Dosage: 100 MG, QD
     Route: 048
     Dates: start: 20150604, end: 20150721
  10. LIDOCAINE. [Concomitant]
     Active Substance: LIDOCAINE
  11. COMETRIQ [Suspect]
     Active Substance: CABOZANTINIB S-MALATE
     Indication: METASTASES TO LIVER
     Dosage: 80 MG QD
     Route: 048
     Dates: start: 2015, end: 2015
  12. VANCOMYCIN [Concomitant]
     Active Substance: VANCOMYCIN
  13. LORAZEPAM. [Concomitant]
     Active Substance: LORAZEPAM
  14. MAGNESIUM GLUCONATE [Concomitant]
     Active Substance: MAGNESIUM GLUCONATE
  15. COMETRIQ [Suspect]
     Active Substance: CABOZANTINIB S-MALATE
     Dosage: 80 MG, QD
     Route: 048
     Dates: start: 20151124
  16. MICONAZOLE. [Concomitant]
     Active Substance: MICONAZOLE
  17. XARELTO [Suspect]
     Active Substance: RIVAROXABAN
  18. PROCHLORPERAZINE. [Concomitant]
     Active Substance: PROCHLORPERAZINE
  19. HYDROMORPHONE [Concomitant]
     Active Substance: HYDROMORPHONE
  20. MULTIVITAMIN [Concomitant]
     Active Substance: VITAMINS
  21. REMERON [Concomitant]
     Active Substance: MIRTAZAPINE
  22. HYDROCORTISONE. [Concomitant]
     Active Substance: HYDROCORTISONE
  23. ONDANSETRON [Concomitant]
     Active Substance: ONDANSETRON
  24. PERCOCET [Concomitant]
     Active Substance: ACETAMINOPHEN\OXYCODONE HYDROCHLORIDE
  25. ATROPINE W/DIPHENOXYLATE [Concomitant]
     Active Substance: ATROPINE\DIPHENOXYLATE
  26. ZINC SULFATE [Concomitant]
     Active Substance: ZINC SULFATE\ZINC SULFATE ANHYDROUS

REACTIONS (20)
  - Death [Fatal]
  - Depression [Unknown]
  - Urinary tract infection [Unknown]
  - Hypotension [Unknown]
  - Arthralgia [Unknown]
  - Metastases to bone [Unknown]
  - Ageusia [Unknown]
  - Stomatitis [Unknown]
  - Decubitus ulcer [Recovering/Resolving]
  - Pathological fracture [Unknown]
  - Headache [Unknown]
  - Wound infection [Unknown]
  - Fatigue [Not Recovered/Not Resolved]
  - Decreased appetite [Not Recovered/Not Resolved]
  - Diarrhoea [Not Recovered/Not Resolved]
  - Clostridium difficile colitis [Not Recovered/Not Resolved]
  - Pneumonia [Unknown]
  - Thrombosis in device [Unknown]
  - Haematoma [Unknown]
  - Muscle atrophy [Unknown]

NARRATIVE: CASE EVENT DATE: 2015
